FAERS Safety Report 25509607 (Version 1)
Quarter: 2025Q3

REPORT INFORMATION
  Report Type: Spontaneous
  Country: US (occurrence: US)
  Receive Date: 20250703
  Receipt Date: 20250703
  Transmission Date: 20251020
  Serious: Yes (Other)
  Sender: BAYER HEALTHCARE LLC
  Company Number: US-BAYER-2025A087478

PATIENT
  Age: 61 Year
  Sex: Male
  Weight: 140.6 kg

DRUGS (3)
  1. ASPIRIN [Suspect]
     Active Substance: ASPIRIN
     Indication: Arthralgia
  2. ASPIRIN [Suspect]
     Active Substance: ASPIRIN
     Indication: Seasonal allergy
  3. VITAMIN B COMPLEX [Concomitant]
     Active Substance: CYANOCOBALAMIN\DEXPANTHENOL\NIACINAMIDE\PYRIDOXINE HYDROCHLORIDE\RIBOFLAVIN 5^-PHOSPHATE SODIUM\THIA

REACTIONS (1)
  - Haematochezia [Recovered/Resolved]
